FAERS Safety Report 9768934 (Version 3)
Quarter: 2014Q1

REPORT INFORMATION
  Report Type: Spontaneous
  Country: DE (occurrence: None)
  Receive Date: 20131216
  Receipt Date: 20140114
  Transmission Date: 20141002
  Serious: Yes (Other)
  Sender: FDA-Public Use
  Company Number: 1312-1574

PATIENT
  Age: 84 Year
  Sex: Male

DRUGS (1)
  1. EYLEA (AFLIBERCEPT) ( INJECTION) (AFLIBERCEPT) [Suspect]
     Dates: start: 20131114

REACTIONS (3)
  - Detachment of retinal pigment epithelium [None]
  - Retinal haemorrhage [None]
  - Vitreous detachment [None]
